FAERS Safety Report 11855762 (Version 1)
Quarter: 2015Q4

REPORT INFORMATION
  Report Type: Spontaneous
  Country: JP (occurrence: JP)
  Receive Date: 20151221
  Receipt Date: 20151221
  Transmission Date: 20160305
  Serious: Yes (Other)
  Sender: FDA-Public Use
  Company Number: JP-SHIONOGI, INC-2015001304

PATIENT
  Age: 4 Year
  Sex: Male

DRUGS (6)
  1. FINIBAX [Suspect]
     Active Substance: DORIPENEM MONOHYDRATE
     Indication: SYSTEMIC CANDIDA
  2. MICAFUNGIN SODIUM [Concomitant]
     Active Substance: MICAFUNGIN SODIUM
     Indication: SYSTEMIC CANDIDA
  3. FINIBAX [Suspect]
     Active Substance: DORIPENEM MONOHYDRATE
     Indication: FEBRILE NEUTROPENIA
     Dosage: UNK
     Route: 065
  4. IMATINIB [Concomitant]
     Active Substance: IMATINIB
     Indication: LYMPHOCYTIC LEUKAEMIA
     Dosage: UNK
     Route: 065
  5. G-CSF [Concomitant]
     Active Substance: GRANULOCYTE COLONY-STIMULATING FACTOR NOS
     Indication: FEBRILE NEUTROPENIA
     Dosage: UNK
     Route: 065
  6. MICAFUNGIN SODIUM [Concomitant]
     Active Substance: MICAFUNGIN SODIUM
     Indication: FEBRILE NEUTROPENIA
     Dosage: UNK
     Route: 016

REACTIONS (4)
  - Pleural effusion [Recovering/Resolving]
  - Diarrhoea [Unknown]
  - Ascites [Recovering/Resolving]
  - Abdominal pain [Unknown]
